FAERS Safety Report 9008081 (Version 2)
Quarter: 2013Q2

REPORT INFORMATION
  Report Type: Spontaneous
  Country: US (occurrence: None)
  Receive Date: 20120517
  Receipt Date: 20120830
  Transmission Date: 20140414
  Serious: Yes (Other)
  Sender: FDA-Public Use
  Company Number: PHHY2011US48207

PATIENT
  Sex: 0

DRUGS (1)
  1. SANDOSTATIN [Suspect]
     Indication: ACROMEGALY

REACTIONS (3)
  - Insulin-like growth factor increased [None]
  - Blood growth hormone increased [None]
  - Drug ineffective [None]
